FAERS Safety Report 24040260 (Version 1)
Quarter: 2024Q3

REPORT INFORMATION
  Report Type: Report from Study
  Country: US (occurrence: US)
  Receive Date: 20240702
  Receipt Date: 20240702
  Transmission Date: 20241016
  Serious: Yes (Other)
  Sender: PFIZER
  Company Number: US-PFIZER INC-202400203370

PATIENT
  Age: 36 Month
  Sex: Female

DRUGS (4)
  1. IRINOTECAN HYDROCHLORIDE [Suspect]
     Active Substance: IRINOTECAN HYDROCHLORIDE
     Indication: Medulloblastoma recurrent
     Dosage: 125 MG/M2/DOSE, CYCLIC, DAYS 1, 8,  2 CYCLES (EACH CYCLE IS 28 DAYS)
     Route: 042
  2. CYCLOPHOSPHAMIDE [Suspect]
     Active Substance: CYCLOPHOSPHAMIDE
     Indication: Medulloblastoma recurrent
     Dosage: 1500 MG/M2/DOSE, CYCLIC, DAYS 1, 2, 2 CYCLES (EACH CYCLE IS 28 DAYS)
     Route: 042
  3. TEMOZOLOMIDE [Suspect]
     Active Substance: TEMOZOLOMIDE
     Indication: Medulloblastoma recurrent
     Dosage: 150 MG/M2/DOSE, CYCLIC, QDAY ON DAYS 1-5,CYCLIC, 2 CYCLES (EACH CYCLE IS 28 DAYS)
     Route: 048
  4. ETOPOSIDE [Suspect]
     Active Substance: ETOPOSIDE
     Indication: Medulloblastoma recurrent
     Dosage: 50 MG/M2/DOSE, CYCLIC, QDAY ON DAYS 1-7, CYCLIC, 2 CYCLES (EACH CYCLE IS 28 DAYS)
     Route: 048

REACTIONS (3)
  - Hyponatraemia [Unknown]
  - Myelosuppression [Unknown]
  - Seizure [Unknown]
